FAERS Safety Report 4648125-X (Version None)
Quarter: 2005Q2

REPORT INFORMATION
  Report Type: 
  Country: None (occurrence: None)
  Receive Date: 20050331
  Receipt Date: 20041207
  Transmission Date: 20051028
  Serious: No
  Sender: FDA-Public Use
  Company Number: 04P-163-0282980-00

PATIENT
  Age: 68 Year
  Sex: Female
  Weight: 69.4003 kg

DRUGS (13)
  1. HUMIRA [Suspect]
     Indication: RHEUMATOID ARTHRITIS
     Dosage: 40 MG, 1 IN 2 WK, SUBCUTANEOUS; 40 MG, 1 IN 1 M, SUBCUTANEOUS
     Route: 058
     Dates: start: 20030501, end: 20040901
  2. HUMIRA [Suspect]
     Indication: RHEUMATOID ARTHRITIS
     Dosage: 40 MG, 1 IN 2 WK, SUBCUTANEOUS; 40 MG, 1 IN 1 M, SUBCUTANEOUS
     Route: 058
     Dates: start: 20040901
  3. METHOTREXATE SODIUM [Concomitant]
  4. HYDROXYCHLOROQUINE PHOSPHATE [Concomitant]
  5. METOPROLOL SUCCINATE [Concomitant]
  6. LETHICIN [Concomitant]
  7. POTASSIUM CHLORIDE [Concomitant]
  8. CO-DIOVAN [Concomitant]
  9. ASCORBIC ACID [Concomitant]
  10. TOCOPHEROL CONCENTRATE CAP [Concomitant]
  11. CALCIUM GLUCONATE [Concomitant]
  12. GLUCOSAMINE [Concomitant]
  13. FOLIC ACID [Concomitant]

REACTIONS (5)
  - ALOPECIA [None]
  - ERYTHEMA [None]
  - PAIN OF SKIN [None]
  - PSORIASIS [None]
  - RESPIRATORY TRACT INFECTION [None]
